FAERS Safety Report 14204117 (Version 2)
Quarter: 2018Q1

REPORT INFORMATION
  Report Type: Report from Study
  Country: US (occurrence: US)
  Receive Date: 20171120
  Receipt Date: 20180120
  Transmission Date: 20180508
  Serious: Yes (Disabling)
  Sender: FDA-Public Use
  Company Number: PHEH2017US037330

PATIENT
  Age: 45 Year
  Sex: Male

DRUGS (1)
  1. AZOPT [Suspect]
     Active Substance: BRINZOLAMIDE
     Indication: GLAUCOMA
     Dosage: UNK, TID OU
     Route: 061
     Dates: start: 20110330

REACTIONS (4)
  - Visual acuity reduced [Unknown]
  - Vision blurred [Unknown]
  - Visual field defect [Unknown]
  - Blindness [Not Recovered/Not Resolved]

NARRATIVE: CASE EVENT DATE: 20110330
